FAERS Safety Report 19650990 (Version 1)
Quarter: 2021Q3

REPORT INFORMATION
  Report Type: Spontaneous
  Country: US (occurrence: US)
  Receive Date: 20210803
  Receipt Date: 20210803
  Transmission Date: 20211014
  Serious: Yes (Other)
  Sender: FDA-Public Use
  Company Number: US-DRREDDYS-LIT/USA/21/0138507

PATIENT
  Age: 29 Year
  Sex: Male

DRUGS (1)
  1. NALOXONE HYDROCHLORIDE. [Suspect]
     Active Substance: NALOXONE HYDROCHLORIDE
     Indication: OVERDOSE
     Route: 030

REACTIONS (6)
  - Drug withdrawal syndrome [Unknown]
  - Anxiety [Unknown]
  - Apnoeic attack [Unknown]
  - Heart rate increased [Unknown]
  - Mydriasis [Unknown]
  - Irritability [Unknown]
